FAERS Safety Report 9517049 (Version 2)
Quarter: 2013Q3

REPORT INFORMATION
  Report Type: Spontaneous
  Country: US (occurrence: US)
  Receive Date: 20130911
  Receipt Date: 20130911
  Transmission Date: 20140515
  Serious: No
  Sender: FDA-Public Use
  Company Number: US-PFIZER INC-2013213660

PATIENT
  Age: 28 Year
  Sex: Female

DRUGS (6)
  1. GEODON [Suspect]
     Indication: SEDATIVE THERAPY
     Dosage: 160 MG, DAY
     Route: 042
     Dates: start: 200106
  2. GEODON [Suspect]
     Indication: MENTAL DISORDER
  3. FLUPHENAZINE [Concomitant]
     Indication: MENTAL DISORDER
     Dosage: 20 MG, PER DAY
  4. RISPERDAL [Concomitant]
     Indication: MENTAL DISORDER
     Dosage: 9 MG, PER DAY
  5. BENZATROPINE [Concomitant]
     Indication: MENTAL DISORDER
     Dosage: 6 MG, PER DAY
  6. PROPRANOLOL [Concomitant]
     Indication: MENTAL DISORDER
     Dosage: 40 MG, PER DAY

REACTIONS (3)
  - Off label use [Unknown]
  - Incorrect route of drug administration [Unknown]
  - Drug effect incomplete [Unknown]
